FAERS Safety Report 7113116-6 (Version None)
Quarter: 2010Q4

REPORT INFORMATION
  Report Type: 
  Country: None (occurrence: None)
  Receive Date: 20101119
  Receipt Date: 20101110
  Transmission Date: 20110411
  Serious: Yes (Hospitalization)
  Sender: FDA-Public Use
  Company Number: JP-ASTRAZENECA-2010SE52317

PATIENT
  Age: 75 Year
  Sex: Male
  Weight: 66 kg

DRUGS (12)
  1. SYMBICORT [Suspect]
     Indication: ASTHMA
     Dosage: 2 DF
     Route: 055
     Dates: start: 20101018, end: 20101018
  2. SYMBICORT [Suspect]
     Dosage: 30 DF
     Route: 055
     Dates: start: 20101019, end: 20101020
  3. MOBIC [Concomitant]
     Indication: LUMBAR VERTEBRAL FRACTURE
     Route: 048
     Dates: start: 20070927
  4. AMLODIPINE [Concomitant]
     Indication: HYPERTENSION
     Route: 048
     Dates: start: 20090219
  5. KAITRON [Concomitant]
     Indication: CARDIAC FAILURE
     Route: 048
     Dates: start: 20090703
  6. OLMETEC [Concomitant]
     Indication: HYPERTENSION
     Route: 048
     Dates: start: 20091127
  7. NATRIX [Concomitant]
     Indication: HYPERTENSION
     Route: 048
     Dates: start: 20100204
  8. ALOSITOL [Concomitant]
     Indication: HYPERURICAEMIA
     Route: 048
     Dates: start: 20100630
  9. WARFARIN [Concomitant]
     Indication: ATRIAL FIBRILLATION
     Route: 048
     Dates: start: 20100820
  10. KEILASE A [Concomitant]
     Indication: GASTRITIS
     Dosage: THREE TIMES A DAY
     Route: 048
     Dates: start: 20100820
  11. ALVESCO [Concomitant]
     Indication: ASTHMA
     Route: 055
     Dates: start: 20100916, end: 20101018
  12. HOKUNALIN:TAPE [Concomitant]
     Indication: BRONCHITIS
     Route: 062
     Dates: start: 20100916

REACTIONS (3)
  - CARDIAC FAILURE CONGESTIVE [None]
  - OVERDOSE [None]
  - PLEURAL EFFUSION [None]
